FAERS Safety Report 12053616 (Version 5)
Quarter: 2016Q3

REPORT INFORMATION
  Report Type: Spontaneous
  Country: JP (occurrence: JP)
  Receive Date: 20160209
  Receipt Date: 20160819
  Transmission Date: 20161109
  Serious: Yes (Other)
  Sender: FDA-Public Use
  Company Number: JP-GILEAD-2016-0194560AA

PATIENT
  Age: 75 Year
  Sex: Female

DRUGS (4)
  1. HARVONI [Suspect]
     Active Substance: LEDIPASVIR\SOFOSBUVIR
     Indication: CHRONIC HEPATITIS C
     Dosage: 1 DF, UNK
     Route: 048
     Dates: start: 20151211, end: 20160304
  2. PROMAC                             /01312301/ [Concomitant]
     Active Substance: POLAPREZINC
     Dosage: UNK
     Route: 065
  3. ARTIST [Concomitant]
     Active Substance: CARVEDILOL
     Indication: HYPERTENSION
     Dosage: 10 MG, QD
     Route: 048
  4. AMLODIPINE [Concomitant]
     Active Substance: AMLODIPINE BESYLATE
     Indication: HYPERTENSION
     Dosage: 5 MG, QD
     Route: 048

REACTIONS (3)
  - Atrial fibrillation [Not Recovered/Not Resolved]
  - Malaise [Recovering/Resolving]
  - Palpitations [Recovering/Resolving]

NARRATIVE: CASE EVENT DATE: 20160119
